FAERS Safety Report 5211514-9 (Version None)
Quarter: 2007Q1

REPORT INFORMATION
  Report Type: 
  Country: None (occurrence: None)
  Receive Date: 20070116
  Receipt Date: 20070103
  Transmission Date: 20070707
  Serious: Yes (Disabling)
  Sender: FDA-Public Use
  Company Number: 228722

PATIENT
  Age: 54 Year
  Sex: Female
  Weight: 91.6 kg

DRUGS (18)
  1. RITUXIMAB(RITUXIMAB) CONC FOR SOLUTION FOR INFUSION [Suspect]
     Indication: RHEUMATOID ARTHRITIS
     Dosage: 1000 MG, DAYS 1+15, INTRAVENOUS
     Route: 042
     Dates: start: 20060503, end: 20060517
  2. METHOTREXATE [Concomitant]
  3. FOLTX (CYANOCOBALAMIN, FOLIC ACID, PYRIDOXINE HYDROCHLORIDE) [Concomitant]
  4. CELEBREX [Concomitant]
  5. PREDNISONE TAB [Concomitant]
  6. LEXAPRO [Concomitant]
  7. FOSAMAX [Concomitant]
  8. ISOSORBIDE (ISOSORBIDE NOS) [Concomitant]
  9. NITROGLYCERIN [Concomitant]
  10. PLAVIX [Concomitant]
  11. OXYCODONE HCL [Concomitant]
  12. VITAMIN D (CHOLECALCIFEROL) [Concomitant]
  13. ASCORBIC ACID [Concomitant]
  14. DARVOCET (ACETAMINOPHEN, PROPOXYPHENE NAPSYLATE) [Concomitant]
  15. CALCIUM (CALCIUM NOS) [Concomitant]
  16. FISH OIL (FISH OIL) [Concomitant]
  17. CORTISONE (CORTISONE ACETATE) [Concomitant]
  18. ASPIRIN [Concomitant]

REACTIONS (5)
  - ACTIVITIES OF DAILY LIVING IMPAIRED [None]
  - COMPRESSION FRACTURE [None]
  - GAIT DISTURBANCE [None]
  - INSOMNIA [None]
  - OSTEONECROSIS [None]
